FAERS Safety Report 9099481 (Version 2)
Quarter: 2013Q3

REPORT INFORMATION
  Report Type: Report from Study
  Country: NL (occurrence: NL)
  Receive Date: 20130214
  Receipt Date: 20130927
  Transmission Date: 20140515
  Serious: Yes (Death, Other)
  Sender: FDA-Public Use
  Company Number: PHHY2013NL013845

PATIENT
  Sex: Male

DRUGS (9)
  1. ZOMETA [Suspect]
     Indication: PROSTATE CANCER METASTATIC
     Dosage: 4MG / 100ML ,1X / 42 DAYS
     Route: 041
  2. ZOMETA [Suspect]
     Dosage: 4MG / 100ML ,1X / 42 DAYS
     Route: 041
     Dates: start: 20110728
  3. ZOMETA [Suspect]
     Dosage: 4MG / 100ML ,1X / 42 DAYS
     Route: 041
     Dates: start: 20121108
  4. ZOMETA [Suspect]
     Dosage: 4MG / 100ML ,1X / 42 DAYS
     Route: 041
     Dates: start: 20121218
  5. ALFACALCIDOL [Concomitant]
     Dosage: UNK UKN, UNK
  6. METOPROLOL [Concomitant]
     Dosage: UNK UKN, UNK
  7. PANTOPRAZOLE [Concomitant]
     Dosage: UNK UKN, UNK
  8. OXYCONTIN [Concomitant]
     Dosage: UNK UKN, UNK
  9. CRESTOR [Concomitant]
     Dosage: UNK UKN, UNK

REACTIONS (2)
  - Prostate cancer metastatic [Fatal]
  - General physical health deterioration [Unknown]
